FAERS Safety Report 9543780 (Version 2)
Quarter: 2013Q3

REPORT INFORMATION
  Report Type: Spontaneous
  Country: DE (occurrence: DE)
  Receive Date: 20130923
  Receipt Date: 20130923
  Transmission Date: 20140515
  Serious: Yes (Other)
  Sender: FDA-Public Use
  Company Number: DE-009507513-1209DEU012016

PATIENT
  Sex: 0

DRUGS (1)
  1. DIPROSONE [Suspect]

REACTIONS (6)
  - Low birth weight baby [Unknown]
  - Head circumference abnormal [Unknown]
  - Body height decreased [Unknown]
  - Small size placenta [Unknown]
  - Placental insufficiency [Unknown]
  - Placental insufficiency [Unknown]
